FAERS Safety Report 5649894-2 (Version None)
Quarter: 2008Q1

REPORT INFORMATION
  Report Type: 
  Country: None (occurrence: None)
  Receive Date: 20080219
  Receipt Date: 20080207
  Transmission Date: 20080703
  Serious: Yes (Hospitalization)
  Sender: FDA-Public Use
  Company Number: WSDF_00704

PATIENT

DRUGS (1)
  1. WINRHO SDF [Suspect]

REACTIONS (2)
  - HAEMOLYTIC ANAEMIA [None]
  - INTRAVASCULAR HAEMOLYSIS [None]
